FAERS Safety Report 4701458-0 (Version None)
Quarter: 2005Q2

REPORT INFORMATION
  Report Type: 
  Country: None (occurrence: None)
  Receive Date: 20050627
  Receipt Date: 20050613
  Transmission Date: 20051028
  Serious: Yes (Death)
  Sender: FDA-Public Use
  Company Number: HQWYE382713JUN05

PATIENT
  Age: 57 Year
  Sex: Male

DRUGS (4)
  1. EFFEXOR [Suspect]
     Dosage: OVERDOSE AMOUNT
  2. MANERIX (MOCLOBEMIDE) [Suspect]
     Indication: OVERDOSE
     Dosage: OVERDOSE
  3. TRIMIPRAMINE MALEATE [Suspect]
  4. WELLBUTRIN [Suspect]

REACTIONS (12)
  - CARDIAC ARREST [None]
  - DIARRHOEA [None]
  - DRUG INTERACTION [None]
  - DYSPNOEA [None]
  - HEPATIC CONGESTION [None]
  - HEPATIC STEATOSIS [None]
  - HYPERHIDROSIS [None]
  - MULTIPLE DRUG OVERDOSE [None]
  - PULMONARY CONGESTION [None]
  - PULMONARY OEDEMA [None]
  - RESPIRATORY ARREST [None]
  - SEROTONIN SYNDROME [None]
